FAERS Safety Report 20662703 (Version 2)
Quarter: 2024Q4

REPORT INFORMATION
  Report Type: Spontaneous
  Country: IT (occurrence: IT)
  Receive Date: 20220401
  Receipt Date: 20241105
  Transmission Date: 20250114
  Serious: No
  Sender: SANOFI AVENTIS
  Company Number: IT-SA-2022SA111466

PATIENT
  Age: 49 Year
  Sex: Male

DRUGS (1)
  1. DUPILUMAB [Suspect]
     Active Substance: DUPILUMAB
     Indication: Dermatitis atopic
     Dosage: UNK
     Dates: start: 202002

REACTIONS (8)
  - Arthritis [Recovered/Resolved]
  - Swelling [Recovered/Resolved]
  - Tenderness [Recovered/Resolved]
  - Synovitis [Recovered/Resolved]
  - Rebound atopic dermatitis [Recovered/Resolved]
  - Rebound effect [Recovered/Resolved]
  - Pruritus [Recovered/Resolved]
  - Pain of skin [Recovered/Resolved]

NARRATIVE: CASE EVENT DATE: 20200101
